FAERS Safety Report 24738904 (Version 2)
Quarter: 2024Q4

REPORT INFORMATION
  Report Type: Spontaneous
  Country: BR (occurrence: BR)
  Receive Date: 20241216
  Receipt Date: 20241227
  Transmission Date: 20250115
  Serious: Yes (Hospitalization)
  Sender: TEVA
  Company Number: BR-TEVA-VS-3275072

PATIENT
  Age: 18 Year
  Sex: Female

DRUGS (1)
  1. CYCLOBENZAPRINE [Suspect]
     Active Substance: CYCLOBENZAPRINE
     Indication: Product used for unknown indication
     Route: 048

REACTIONS (4)
  - Altered state of consciousness [Recovered/Resolved]
  - Intentional product misuse [Unknown]
  - Toxicity to various agents [Recovered/Resolved]
  - Intentional overdose [Unknown]
